FAERS Safety Report 24125688 (Version 1)
Quarter: 2024Q3

REPORT INFORMATION
  Report Type: Spontaneous
  Country: CN (occurrence: CN)
  Receive Date: 20240723
  Receipt Date: 20240723
  Transmission Date: 20241016
  Serious: Yes (Hospitalization, Other)
  Sender: ACCORD
  Company Number: None

PATIENT
  Age: 61 Year
  Sex: Female
  Weight: 69 kg

DRUGS (4)
  1. TRASTUZUMAB [Suspect]
     Active Substance: TRASTUZUMAB
     Indication: Metastases to liver
     Dosage: 414 MILLIGRAM, QD
     Route: 042
     Dates: start: 20240628, end: 20240628
  2. VINORELBINE TARTRATE [Suspect]
     Active Substance: VINORELBINE TARTRATE
     Indication: Invasive breast carcinoma
     Dosage: CAPSULE, 100 MILLIGRAM, WEEKLY
     Route: 048
     Dates: start: 20240628, end: 20240628
  3. PYROTINIB [Suspect]
     Active Substance: PYROTINIB
     Indication: Invasive breast carcinoma
     Dosage: 320 MILLIGRAM, QD
     Route: 048
     Dates: start: 20240628, end: 20240628
  4. ANASTROZOLE [Suspect]
     Active Substance: ANASTROZOLE
     Indication: Invasive breast carcinoma
     Dosage: 1 MILLIGRAM, QD
     Route: 048
     Dates: start: 20240628, end: 20240628

REACTIONS (5)
  - Electrolyte imbalance [Recovering/Resolving]
  - Diarrhoea [Recovering/Resolving]
  - Abdominal pain [Recovering/Resolving]
  - Nausea [Recovering/Resolving]
  - Vomiting [Recovering/Resolving]

NARRATIVE: CASE EVENT DATE: 20240101
